FAERS Safety Report 7736685-1 (Version None)
Quarter: 2011Q3

REPORT INFORMATION
  Report Type: 
  Country: None (occurrence: None)
  Receive Date: 20110908
  Receipt Date: 20110901
  Transmission Date: 20111222
  Serious: Yes (Other)
  Sender: FDA-Public Use
  Company Number: US-JNJFOC-20110901256

PATIENT
  Age: 35 Year
  Sex: Male

DRUGS (1)
  1. NUCYNTA [Suspect]
     Indication: PAIN
     Route: 048
     Dates: start: 20110101, end: 20110101

REACTIONS (3)
  - TUNNEL VISION [None]
  - NERVOUS SYSTEM DISORDER [None]
  - HALLUCINATION [None]
